FAERS Safety Report 8010534-9 (Version None)
Quarter: 2011Q4

REPORT INFORMATION
  Report Type: 
  Country: None (occurrence: None)
  Receive Date: 20111228
  Receipt Date: 20111215
  Transmission Date: 20120403
  Serious: Yes (Other)
  Sender: FDA-Public Use
  Company Number: PHEH2011US011754

PATIENT
  Sex: Female

DRUGS (8)
  1. ADVAIR DISKUS 100/50 [Concomitant]
     Dosage: UNK
  2. VALTURNA [Suspect]
     Dosage: 0.5 DF, (HALF AND TAKE HAVE IN THE MORNING AND HALF IN THE EVENING)
  3. EXFORGE [Suspect]
     Dosage: UNK
  4. EXFORGE HCT [Suspect]
     Dosage: 1 DF, QD (160 MG VALS , 5 MG AMLO AND 25 MG HYDRO)
  5. VALTURNA [Suspect]
     Dosage: 1 DF, QD(150 MG ALISK AND 160 MG VALS
  6. ALBUTEROL [Concomitant]
     Dosage: UNK
  7. SULFAMETHOXAZOLE AND TRIMETHOPRIM [Concomitant]
     Dosage: UNK
  8. CLONIDINE [Concomitant]
     Dosage: 0.1 MG

REACTIONS (7)
  - INFLUENZA LIKE ILLNESS [None]
  - CHEST DISCOMFORT [None]
  - GAIT DISTURBANCE [None]
  - WRONG TECHNIQUE IN DRUG USAGE PROCESS [None]
  - EXPIRED DRUG ADMINISTERED [None]
  - RENAL DISORDER [None]
  - DYSPNOEA EXERTIONAL [None]
